FAERS Safety Report 8541108-9 (Version None)
Quarter: 2012Q3

REPORT INFORMATION
  Report Type: 
  Country: None (occurrence: None)
  Receive Date: 20120726
  Receipt Date: 20120306
  Transmission Date: 20120928
  Serious: No
  Sender: FDA-Public Use
  Company Number: US-ASTRAZENECA-2011SE49063

PATIENT
  Age: 62 Year
  Sex: Female

DRUGS (2)
  1. SYNTHROID [Suspect]
     Route: 065
  2. SEROQUEL XR [Suspect]
     Route: 048

REACTIONS (3)
  - BLOOD PRESSURE ABNORMAL [None]
  - DRUG DOSE OMISSION [None]
  - MEMORY IMPAIRMENT [None]
